FAERS Safety Report 8941584 (Version 1)
Quarter: 2012Q4

REPORT INFORMATION
  Report Type: 
  Country: US (occurrence: US)
  Receive Date: 20121203
  Receipt Date: 20121203
  Transmission Date: 20130627
  Serious: Yes (Other)
  Sender: FDA-Public Use
  Company Number: US-PFIZER INC-2012302219

PATIENT
  Age: 48 Year
  Sex: Female
  Weight: 83.9 kg

DRUGS (3)
  1. LYRICA [Suspect]
     Indication: REFLEX SYMPATHETIC DYSTROPHY
     Dosage: 100 mg, 3x/day
     Dates: start: 201208
  2. MORPHINE ER [Concomitant]
     Dosage: 40 mg, 3x/day
  3. SOMA [Concomitant]
     Dosage: 30 mg, 3x/day

REACTIONS (6)
  - Weight increased [Not Recovered/Not Resolved]
  - Blood pressure increased [Not Recovered/Not Resolved]
  - Dyspnoea [Unknown]
  - Migraine [Recovered/Resolved]
  - Gait disturbance [Unknown]
  - Hypokinesia [Unknown]
